FAERS Safety Report 25978420 (Version 1)
Quarter: 2025Q4

REPORT INFORMATION
  Report Type: Spontaneous
  Country: RU (occurrence: RU)
  Receive Date: 20251030
  Receipt Date: 20251030
  Transmission Date: 20260118
  Serious: Yes (Death, Other)
  Sender: ROCHE
  Company Number: RU-ROCHE-10000421527

PATIENT
  Age: 44 Year
  Sex: Male

DRUGS (5)
  1. POLATUZUMAB VEDOTIN [Suspect]
     Active Substance: POLATUZUMAB VEDOTIN
     Indication: Diffuse large B-cell lymphoma
     Dosage: NUMBER OF POLATUZUMAB VEDOTIN CYCLES COMPLETED IN?FIRST-LINE THERAPY WAS 6.
     Route: 065
     Dates: start: 20240923
  2. RITUXIMAB [Suspect]
     Active Substance: RITUXIMAB
     Indication: Diffuse large B-cell lymphoma
     Dosage: ADMINISTRATION OF 2 CYCLES OF RITUXIMAB MONOTHERAPY CARRIED OUT AFTER FIRST-LINE THERAPY
     Route: 065
     Dates: start: 20240923
  3. CYCLOPHOSPHAMIDE [Suspect]
     Active Substance: CYCLOPHOSPHAMIDE
     Indication: Diffuse large B-cell lymphoma
     Route: 065
     Dates: start: 20240923
  4. PREDNISONE [Suspect]
     Active Substance: PREDNISONE
     Indication: Diffuse large B-cell lymphoma
     Route: 065
     Dates: start: 20240923
  5. DOXORUBICIN [Suspect]
     Active Substance: DOXORUBICIN
     Indication: Diffuse large B-cell lymphoma
     Route: 065
     Dates: start: 20240923

REACTIONS (4)
  - Neutropenia [Unknown]
  - Leukopenia [Unknown]
  - Febrile neutropenia [Unknown]
  - Disease progression [Fatal]

NARRATIVE: CASE EVENT DATE: 20250131
